FAERS Safety Report 26020652 (Version 3)
Quarter: 2025Q4

REPORT INFORMATION
  Report Type: Spontaneous
  Country: US (occurrence: US)
  Receive Date: 20251110
  Receipt Date: 20251210
  Transmission Date: 20260118
  Serious: No
  Sender: PFIZER
  Company Number: US-PFIZER INC-202500214771

PATIENT
  Age: 12 Year
  Sex: Female

DRUGS (1)
  1. GENOTROPIN [Suspect]
     Active Substance: SOMATROPIN
     Dosage: 1.4 MG, 6 DAYS A WEEK
     Dates: start: 202510

REACTIONS (1)
  - Device delivery system issue [Unknown]

NARRATIVE: CASE EVENT DATE: 20251028
